FAERS Safety Report 10053210 (Version 5)
Quarter: 2014Q3

REPORT INFORMATION
  Report Type: Spontaneous
  Country: US (occurrence: US)
  Receive Date: 20140402
  Receipt Date: 20140805
  Transmission Date: 20150326
  Serious: Yes (Death, Life-Threatening, Hospitalization, Disabling, Other)
  Sender: FDA-Public Use
  Company Number: US-GLAXOSMITHKLINE-A1067573A

PATIENT
  Age: 58 Year
  Sex: Female
  Weight: 65 kg

DRUGS (2)
  1. XELODA [Concomitant]
     Active Substance: CAPECITABINE
  2. TYKERB [Suspect]
     Active Substance: LAPATINIB DITOSYLATE
     Indication: BREAST CANCER
     Dosage: 1250MG PER DAY
     Route: 048
     Dates: start: 20140305, end: 20140515

REACTIONS (4)
  - Drug ineffective [Unknown]
  - Breast cancer [Fatal]
  - Metastases to liver [Unknown]
  - Investigation [Unknown]
